FAERS Safety Report 7706350-5 (Version None)
Quarter: 2011Q3

REPORT INFORMATION
  Report Type: 
  Country: None (occurrence: None)
  Receive Date: 20110818
  Receipt Date: 20110809
  Transmission Date: 20111222
  Serious: Yes (Other)
  Sender: FDA-Public Use
  Company Number: LTI2011A00240

PATIENT
  Age: 67 Year
  Sex: Male

DRUGS (1)
  1. ACTOS [Suspect]
     Indication: TYPE 2 DIABETES MELLITUS
     Dosage: 30 MG (30 MG,L IN 1 D) ORAL
     Route: 048
     Dates: start: 20050201, end: 20101231

REACTIONS (3)
  - BLADDER TRANSITIONAL CELL CARCINOMA [None]
  - RENAL CANCER STAGE I [None]
  - URETERIC CANCER [None]
